FAERS Safety Report 18260368 (Version 2)
Quarter: 2020Q3

REPORT INFORMATION
  Report Type: Other
  Country: US (occurrence: US)
  Receive Date: 20200914
  Receipt Date: 20200916
  Transmission Date: 20201103
  Serious: Yes (Other)
  Sender: FDA-Public Use
  Company Number: US-ROCHE-2675723

PATIENT
  Sex: Female

DRUGS (2)
  1. RITUXAN [Suspect]
     Active Substance: RITUXIMAB
     Dosage: INFUSE 1000 MG INTRAVENOUSLY ON DAY(S) 0 AND DAY(S) 15 EVERY 6 MONTH(S)
     Route: 042
  2. RITUXAN [Suspect]
     Active Substance: RITUXIMAB
     Indication: RHEUMATOID ARTHRITIS
     Dosage: 10 MG VIAL INFUSION?INFUSE 1000MG INTRAVENOUSLY ON DAY(S) 0 AND DAY(S)
     Route: 042

REACTIONS (1)
  - COVID-19 [Unknown]
